FAERS Safety Report 21033434 (Version 23)
Quarter: 2022Q4

REPORT INFORMATION
  Report Type: Spontaneous
  Country: GB (occurrence: GB)
  Receive Date: 20220701
  Receipt Date: 20221207
  Transmission Date: 20230113
  Serious: Yes (Hospitalization, Other)
  Sender: FDA-Public Use
  Company Number: GB-MHRA-MIDB-9dff0444-8c8b-4f3a-8491-2708f9843ec8

PATIENT

DRUGS (5)
  1. PREDNISOLONE [Suspect]
     Active Substance: PREDNISOLONE
     Indication: B-cell lymphoma
     Dosage: UNK(RCHOP CHEMO - DOSE AND EXACT ROUTE NOT KNOWN),DILACORT GASTRO RESISTANT,SOLUTION FOR INFUSION,
     Route: 042
     Dates: end: 20220512
  2. VINCRISTINE [Suspect]
     Active Substance: VINCRISTINE
     Indication: B-cell lymphoma
     Dosage: UNK(CYCLIC (6 CYCLE, RCHOP CHEMO - DOSE)  GASTRO RESISTANT,
     Route: 065
     Dates: end: 20220512
  3. RITUXIMAB [Suspect]
     Active Substance: RITUXIMAB
     Indication: B-cell lymphoma
     Dosage: UNK(CYCLIC,6 CYCLERCHOP CHEMO - DOSE AND EXACT ROUTE NOT KNOWN.)
     Route: 041
     Dates: end: 20220512
  4. DOXORUBICIN [Suspect]
     Active Substance: DOXORUBICIN
     Indication: B-cell lymphoma
     Dosage: UNK(CYCLIC (6 CYCLE, RCHOP CHEMO - DOSE)
     Route: 065
     Dates: end: 20220512
  5. CYCLOPHOSPHAMIDE [Suspect]
     Active Substance: CYCLOPHOSPHAMIDE
     Indication: B-cell lymphoma
     Dosage: UNK(CYCLIC (6 CYCLE, RCHOP CHEMO - DOSE)
     Route: 065
     Dates: end: 20220512

REACTIONS (10)
  - Cerebellar syndrome [Unknown]
  - Balance disorder [Unknown]
  - Abnormal behaviour [Unknown]
  - Dysarthria [Unknown]
  - Condition aggravated [Unknown]
  - Disease progression [Unknown]
  - Back pain [Unknown]
  - Lethargy [Unknown]
  - Confusional state [Unknown]
  - Off label use [Unknown]

NARRATIVE: CASE EVENT DATE: 20220514
